FAERS Safety Report 17842607 (Version 3)
Quarter: 2020Q2

REPORT INFORMATION
  Report Type: Spontaneous
  Country: PL (occurrence: PL)
  Receive Date: 20200529
  Receipt Date: 20200609
  Transmission Date: 20200714
  Serious: Yes (Hospitalization, Other)
  Sender: FDA-Public Use
  Company Number: PL-AUROBINDO-AUR-APL-2020-025987

PATIENT
  Age: 66 Year
  Sex: Female

DRUGS (18)
  1. KALETRA [Suspect]
     Active Substance: LOPINAVIR\RITONAVIR
     Indication: COVID-19 PNEUMONIA
     Dosage: 1000 MILLIGRAM, ONCE A DAY
     Route: 048
     Dates: start: 20200321, end: 20200324
  2. AZITHROMYCIN ANHYDROUS. [Concomitant]
     Active Substance: AZITHROMYCIN ANHYDROUS
     Indication: COVID-19
  3. LOPINAVIR;RITONAVIR [Suspect]
     Active Substance: LOPINAVIR\RITONAVIR
     Indication: COVID-19
  4. AZITHROMYCIN ANHYDROUS. [Concomitant]
     Active Substance: AZITHROMYCIN ANHYDROUS
     Indication: COVID-19 PNEUMONIA
  5. DROTAVERINE [Concomitant]
     Active Substance: DROTAVERINE
     Indication: COVID-19
  6. AMOXICILLIN;CLAVULANIC ACID [Concomitant]
     Active Substance: AMOXICILLIN\CLAVULANIC ACID
     Indication: COVID-19
     Dosage: 1 GRAM, TWO TIMES A DAY
     Route: 048
     Dates: start: 20200315
  7. OXYGEN. [Concomitant]
     Active Substance: OXYGEN
     Indication: COVID-19
  8. RIBAVIRIN. [Suspect]
     Active Substance: RIBAVIRIN
     Indication: COVID-19 PNEUMONIA
     Dosage: 1000 MILLIGRAM, ONCE A DAY (400 MG + 600 MG )
     Route: 048
     Dates: start: 20200321, end: 20200324
  9. RIBAVIRIN. [Suspect]
     Active Substance: RIBAVIRIN
     Indication: COVID-19
  10. AZITHROMYCIN ANHYDROUS. [Concomitant]
     Active Substance: AZITHROMYCIN ANHYDROUS
     Indication: PNEUMONIA
     Dosage: 500 MILLIGRAM, ONCE A DAY
     Route: 065
     Dates: start: 20200315
  11. AMOXICILLIN. [Concomitant]
     Active Substance: AMOXICILLIN
     Indication: PNEUMONIA
     Dosage: 1 GRAM, TWO TIMES A DAY
     Route: 048
  12. KALETRA [Suspect]
     Active Substance: LOPINAVIR\RITONAVIR
     Indication: COVID-19
     Dosage: 500 MILLIGRAM, ONCE A DAY (TWICE)
     Route: 048
     Dates: start: 20200321
  13. AMOXICILLIN;CLAVULANIC ACID [Concomitant]
     Active Substance: AMOXICILLIN\CLAVULANIC ACID
     Indication: COVID-19 PNEUMONIA
  14. OXYGEN. [Concomitant]
     Active Substance: OXYGEN
     Indication: COVID-19 PNEUMONIA
  15. LOPINAVIR;RITONAVIR [Suspect]
     Active Substance: LOPINAVIR\RITONAVIR
     Indication: COVID-19 PNEUMONIA
     Dosage: 500 MILLIGRAM, TWO TIMES A DAY
     Route: 065
     Dates: start: 20200321, end: 20200324
  16. DROTAVERINE [Concomitant]
     Active Substance: DROTAVERINE
     Indication: PNEUMONIA
     Dosage: 40 MILLIGRAM, ONCE A DAY (TWICE A DAY)
     Route: 005
     Dates: start: 20200315
  17. DROTAVERINE [Concomitant]
     Active Substance: DROTAVERINE
     Indication: COVID-19 PNEUMONIA
  18. OXYGEN. [Concomitant]
     Active Substance: OXYGEN
     Indication: OXYGEN THERAPY
     Dosage: UNK
     Route: 065
     Dates: start: 20200315

REACTIONS (7)
  - Off label use [Unknown]
  - Abdominal pain [Recovered/Resolved]
  - Therapeutic response unexpected [Unknown]
  - Drug intolerance [Recovered/Resolved]
  - Vomiting [Recovered/Resolved]
  - Nausea [Recovered/Resolved]
  - Diarrhoea [Recovered/Resolved]

NARRATIVE: CASE EVENT DATE: 202003
